FAERS Safety Report 5259279-9 (Version None)
Quarter: 2007Q1

REPORT INFORMATION
  Report Type: 
  Country: None (occurrence: None)
  Receive Date: 20070308
  Receipt Date: 20070305
  Transmission Date: 20070707
  Serious: Yes (Other)
  Sender: FDA-Public Use
  Company Number: US-BOEHRINGER INGELHEIM PHARMACEUTICALS, INC.-2007-BP-03030BP

PATIENT
  Sex: Male

DRUGS (1)
  1. FLOMAX [Suspect]
     Indication: PROSTATE EXAMINATION ABNORMAL
     Route: 048

REACTIONS (2)
  - NOCTURIA [None]
  - PROSTATE CANCER [None]
